FAERS Safety Report 6240109-3 (Version None)
Quarter: 2009Q2

REPORT INFORMATION
  Report Type: 
  Country: None (occurrence: None)
  Receive Date: 20090623
  Receipt Date: 20090615
  Transmission Date: 20091009
  Serious: Yes (Other)
  Sender: FDA-Public Use
  Company Number: FR-JNJFOC-20090604750

PATIENT
  Age: 81 Year
  Sex: Female

DRUGS (10)
  1. HALDOL DECANOAS [Suspect]
     Indication: AGITATION
     Route: 058
  2. HALDOL [Suspect]
     Indication: AGITATION
  3. NEXIUM [Concomitant]
     Route: 065
  4. SODIUM ALGINATE/SODIUM BICARBONATE [Concomitant]
     Route: 065
  5. AVLOCARDYL [Concomitant]
     Route: 065
  6. LEVOTHYROX [Concomitant]
     Route: 065
  7. LYRICA [Concomitant]
     Route: 065
  8. MEPRONIZINE [Concomitant]
     Route: 065
  9. DUPHALAC [Concomitant]
     Route: 065
  10. EDUCTYL [Concomitant]
     Route: 065

REACTIONS (2)
  - DRUG NAME CONFUSION [None]
  - OFF LABEL USE [None]
